FAERS Safety Report 8612443-0 (Version None)
Quarter: 2012Q3

REPORT INFORMATION
  Report Type: 
  Country: None (occurrence: None)
  Receive Date: 20120822
  Receipt Date: 20120814
  Transmission Date: 20120928
  Serious: Yes (Other)
  Sender: FDA-Public Use
  Company Number: US-US-EMD SERONO, INC.-7022555

PATIENT
  Sex: Female
  Weight: 87 kg

DRUGS (4)
  1. REBIF [Suspect]
     Indication: MULTIPLE SCLEROSIS
     Route: 058
     Dates: start: 20061013
  2. NAPROXEN [Concomitant]
     Indication: ARTHRALGIA
  3. MEDICATION UNSPECIFIED [Concomitant]
     Indication: PRODUCT USED FOR UNKNOWN INDICATION
  4. NAPROXEN [Concomitant]
     Indication: ARTHRITIS

REACTIONS (3)
  - GAIT DISTURBANCE [None]
  - ARTHRITIS [None]
  - INJECTION SITE ERYTHEMA [None]
